FAERS Safety Report 7883572-4 (Version None)
Quarter: 2011Q4

REPORT INFORMATION
  Report Type: 
  Country: None (occurrence: None)
  Receive Date: 20111102
  Receipt Date: 20111021
  Transmission Date: 20120403
  Serious: Yes (Hospitalization)
  Sender: FDA-Public Use
  Company Number: US-BAYER-2011-033636

PATIENT
  Age: 33 Year
  Sex: Female
  Weight: 112.2 kg

DRUGS (4)
  1. DROSPIRENONE AND ETHINYL ESTRADIOL [Suspect]
     Dosage: UNK
     Route: 048
     Dates: start: 20090201, end: 20090501
  2. ACYCLOVIR [Concomitant]
     Dosage: 400 MG, UNK
     Dates: start: 20090112
  3. PROPOXYPHENE HCL AND ACETAMINOPHEN [Concomitant]
     Dosage: UNK
     Dates: start: 20090409
  4. METHYLPREDNISOLONE [Concomitant]
     Dosage: 4 MG, UNK
     Dates: start: 20090112

REACTIONS (3)
  - PAIN [None]
  - HAEMORRHOIDS [None]
  - INJURY [None]
